FAERS Safety Report 11593122 (Version 2)
Quarter: 2016Q1

REPORT INFORMATION
  Report Type: Spontaneous
  Country: US (occurrence: US)
  Receive Date: 20151005
  Receipt Date: 20160307
  Transmission Date: 20160525
  Serious: Yes (Hospitalization, Other)
  Sender: FDA-Public Use
  Company Number: US-AMNEAL PHARMACEUTICALS-2015AMN00081

PATIENT
  Age: 64 Year
  Sex: Female
  Weight: 85.26 kg

DRUGS (32)
  1. AVEENO ITCH RELIEF CREAM [Concomitant]
  2. AVEENO SHOWER MOISURERIZER [Concomitant]
  3. RANITIDINE [Suspect]
     Active Substance: RANITIDINE\RANITIDINE HYDROCHLORIDE
     Indication: GASTROOESOPHAGEAL REFLUX DISEASE
     Dosage: 150 MG, 1X/DAY (AT BED TIME)
     Route: 048
     Dates: start: 201501
  4. OMEPRAZOLE. [Concomitant]
     Active Substance: OMEPRAZOLE
     Indication: HIATUS HERNIA
  5. FLONASE [Concomitant]
     Active Substance: FLUTICASONE PROPIONATE
     Dosage: 2 SPRAYS  EACH NOSTRIL DAILY AS NEEDED
     Route: 045
     Dates: start: 20141013
  6. POTASSIUM CHLORIDE. [Concomitant]
     Active Substance: POTASSIUM CHLORIDE
     Dosage: 10 MEQ, 1X/DAY
     Route: 048
  7. DOCUSSATE SODIUM [Concomitant]
     Dosage: 200 MG, ONE TIME A DAY AT BEDTIME
  8. FLUOCINOLONE ACETATE CREAM [Concomitant]
     Dosage: UNK, 1X/DAY, AT BEDTIME
  9. KENALOG SPRAY [Concomitant]
     Dosage: UNK, 2X/DAY, AS NEEDED
  10. DOCUSATE SODIUM. [Concomitant]
     Active Substance: DOCUSATE SODIUM
     Dosage: 100 MG, ART BEDTIME
  11. PROAIR HFA [Concomitant]
     Active Substance: ALBUTEROL SULFATE
     Dosage: 2 PUFFS, FOUR TIMES A DAY
     Route: 048
  12. SYMBICORT [Concomitant]
     Active Substance: BUDESONIDE\FORMOTEROL FUMARATE DIHYDRATE
     Dosage: 2 PUFFS, BID
     Route: 048
     Dates: start: 20120413
  13. MULTIVITAMIN [Concomitant]
     Active Substance: VITAMINS
     Dosage: ONE TABLET ONE TIME  A DAY
     Route: 048
  14. ELIDEL [Concomitant]
     Active Substance: PIMECROLIMUS
     Dosage: UNK, 2X/DAY, AS NEEDED
  15. LYRICA [Concomitant]
     Active Substance: PREGABALIN
     Indication: FIBROMYALGIA
     Dosage: 50 MG, 3X/DAY
     Route: 048
     Dates: start: 20100507
  16. OXYBUTYNIN [Concomitant]
     Active Substance: OXYBUTYNIN
     Dosage: 5 MG, 1X/DAY
     Route: 048
     Dates: start: 20150701
  17. TYMOL 4% ETHANOL [Concomitant]
     Dosage: UNK, 1X/DAY, AT BEDTIME, AE NEEDED
  18. OMEPRAZOLE. [Concomitant]
     Active Substance: OMEPRAZOLE
     Indication: GASTROOESOPHAGEAL REFLUX DISEASE
     Dosage: 40 MG, 2X/DAY
     Route: 048
     Dates: start: 20150528
  19. MEXILETINE [Concomitant]
     Active Substance: MEXILETINE
     Dosage: 150 MG, 2X/DAY
     Route: 048
     Dates: start: 20150518
  20. TOPICAL CREAM [Concomitant]
     Active Substance: UNSPECIFIED INGREDIENT
  21. TWO ANTIBIOTIC (UNKNOWN) [Concomitant]
  22. TUMS ANTACID/CALCIUM SUPPLEMENT [Concomitant]
     Dosage: AS NEEDED
  23. VITAMIN D3 [Concomitant]
     Active Substance: CHOLECALCIFEROL
     Dosage: 5000 IU, 1X/DAY
     Route: 048
     Dates: start: 20110213
  24. FLUOCINOLONE ACETATE OIL [Concomitant]
     Dosage: 3 DROPS AS NEEDED
  25. TRIAMCINOLONE CREAM [Concomitant]
     Dosage: EVERY MORNING, AS NEEDED
  26. DESONIDE CREAM [Concomitant]
     Dosage: UNK, 2X/DAY, AS NEEDED
  27. NYAMYC [Concomitant]
     Active Substance: NYSTATIN
     Dosage: 100000 UNITS, 2X/DAY
     Dates: start: 20150115
  28. RANITIDINE [Suspect]
     Active Substance: RANITIDINE\RANITIDINE HYDROCHLORIDE
     Indication: HIATUS HERNIA
  29. METOPROLOL. [Concomitant]
     Active Substance: METOPROLOL
     Dosage: 12.5 MG, 2X/DAY
     Route: 048
     Dates: start: 20150518
  30. MONTELUKAST [Concomitant]
     Active Substance: MONTELUKAST SODIUM
     Dosage: 10 MG, 1X/DAY
     Route: 048
     Dates: start: 20130319
  31. TRAMADOL HCL / APAP [Concomitant]
     Dosage: 1-2 TABLETS FOUR TIMES A DAY
     Route: 048
     Dates: start: 20110317
  32. AVEENO [Concomitant]
     Active Substance: DIMETHICONE\HOMOSALATE\OCTINOXATE\OCTISALATE\TITANIUM DIOXIDE

REACTIONS (12)
  - Cardiac arrest [Recovered/Resolved]
  - Long QT syndrome [Recovered/Resolved]
  - Coma [Recovered/Resolved]
  - Drug ineffective [Recovered/Resolved]
  - Abdominal discomfort [Recovered/Resolved]
  - Implantable defibrillator insertion [Recovered/Resolved]
  - Paraesthesia [Recovered/Resolved]
  - Diarrhoea [Recovered/Resolved]
  - Malaise [Recovered/Resolved]
  - Blood potassium decreased [Recovered/Resolved]
  - Adverse reaction [Recovered/Resolved]
  - Apnoea [Recovered/Resolved]

NARRATIVE: CASE EVENT DATE: 2015
